FAERS Safety Report 18353887 (Version 2)
Quarter: 2020Q4

REPORT INFORMATION
  Report Type: Spontaneous
  Country: IL (occurrence: IL)
  Receive Date: 20201007
  Receipt Date: 20201020
  Transmission Date: 20210114
  Serious: Yes (Other)
  Sender: FDA-Public Use
  Company Number: IL-TEVA-2020-IL-1836726

PATIENT
  Age: 50 Year
  Sex: Female

DRUGS (1)
  1. HEXAKAPRON [Suspect]
     Active Substance: TRANEXAMIC ACID
     Indication: HAEMORRHAGE

REACTIONS (11)
  - Seizure [Recovered/Resolved]
  - Sensory disturbance [Recovered/Resolved]
  - Anxiety [Recovered/Resolved]
  - Heart rate increased [Recovered/Resolved]
  - Pain [Recovered/Resolved]
  - Gait disturbance [Not Recovered/Not Resolved]
  - Tremor [Recovered/Resolved]
  - Asthenia [Not Recovered/Not Resolved]
  - Therapeutic product effect incomplete [Unknown]
  - Hypertension [Recovered/Resolved]
  - Hypokinesia [Recovered/Resolved]
